FAERS Safety Report 17139030 (Version 1)
Quarter: 2019Q4

REPORT INFORMATION
  Report Type: Spontaneous
  Country: US (occurrence: US)
  Receive Date: 20191210
  Receipt Date: 20191210
  Transmission Date: 20200122
  Serious: No
  Sender: FDA-Public Use
  Company Number: None

PATIENT
  Age: 42 Year
  Weight: 114.75 kg

DRUGS (1)
  1. JARDIANCE [Suspect]
     Active Substance: EMPAGLIFLOZIN
     Indication: DIABETES MELLITUS MANAGEMENT
     Dosage: ?          QUANTITY:1 TABLET(S);?
     Route: 048

REACTIONS (1)
  - Visual impairment [None]

NARRATIVE: CASE EVENT DATE: 20191028
